FAERS Safety Report 23521510 (Version 1)
Quarter: 2024Q1

REPORT INFORMATION
  Report Type: Spontaneous
  Country: CN (occurrence: CN)
  Receive Date: 20240214
  Receipt Date: 20240214
  Transmission Date: 20240410
  Serious: Yes (Hospitalization, Other)
  Sender: FDA-Public Use
  Company Number: None

PATIENT
  Age: 62 Year
  Sex: Female
  Weight: 59 kg

DRUGS (4)
  1. CYCLOPHOSPHAMIDE [Suspect]
     Active Substance: CYCLOPHOSPHAMIDE
     Indication: Breast cancer female
     Dosage: 0.96 G, QD, DILUTED WITH 0.9% SODIUM CHLORIDE 100 ML, THIRD CYCLE, START TIME: 15:07
     Route: 041
     Dates: start: 20240115, end: 20240115
  2. SODIUM CHLORIDE [Suspect]
     Active Substance: SODIUM CHLORIDE
     Indication: Medication dilution
     Dosage: 0.9% 100 ML, QD, USED TO DILUTE CYCLOPHOSPHAMIDE 0.96 G, THIRD CYCLE, START TIME: 15:07
     Route: 041
     Dates: start: 20240115, end: 20240115
  3. SODIUM CHLORIDE [Suspect]
     Active Substance: SODIUM CHLORIDE
     Dosage: 0.9% 85 ML (40-50 DROPS/MIN), QD, USED TO DILUTE PACLITAXEL 410 MG, THIRD CYCLE, START TIME: 15:07
     Route: 041
     Dates: start: 20240115, end: 20240115
  4. PACLITAXEL [Suspect]
     Active Substance: PACLITAXEL
     Indication: Breast cancer female
     Dosage: 410 MG, QD, DILUTED WITH 0.9% SODIUM CHLORIDE 85 ML (40-50 DROPS/MIN), THIRD CYCLE, START TIME: 15:0
     Route: 041
     Dates: start: 20240115, end: 20240115

REACTIONS (5)
  - White blood cell count decreased [Recovered/Resolved]
  - Pyrexia [Recovering/Resolving]
  - Dermatitis allergic [Recovering/Resolving]
  - Rash [Recovering/Resolving]
  - Pruritus [Recovered/Resolved]

NARRATIVE: CASE EVENT DATE: 20240117
